FAERS Safety Report 21004208 (Version 1)
Quarter: 2022Q2

REPORT INFORMATION
  Report Type: Spontaneous
  Country: US (occurrence: None)
  Receive Date: 20220624
  Receipt Date: 20220624
  Transmission Date: 20220721
  Serious: No
  Sender: FDA-Public Use
  Company Number: None

PATIENT
  Age: 59 Year
  Sex: Female

DRUGS (1)
  1. TREMFYA [Suspect]
     Active Substance: GUSELKUMAB
     Indication: Psoriasis
     Dosage: OTHER FREQUENCY : Q 4 WKS;?
     Route: 058
     Dates: start: 202203

REACTIONS (3)
  - Drug dose omission by device [None]
  - Device breakage [None]
  - Device leakage [None]

NARRATIVE: CASE EVENT DATE: 20220621
